FAERS Safety Report 23292267 (Version 1)
Quarter: 2023Q4

REPORT INFORMATION
  Report Type: Spontaneous
  Country: US (occurrence: US)
  Receive Date: 20231213
  Receipt Date: 20231213
  Transmission Date: 20240110
  Serious: No
  Sender: FDA-Public Use
  Company Number: US-ABBVIE-2302712US

PATIENT
  Age: 45 Year
  Sex: Female

DRUGS (2)
  1. BOTOX [Suspect]
     Active Substance: ONABOTULINUMTOXINA
     Indication: Torticollis
     Dosage: TIME INTERVAL: AS NECESSARY
     Route: 030
  2. BOTOX [Suspect]
     Active Substance: ONABOTULINUMTOXINA
     Indication: Torticollis
     Dosage: TIME INTERVAL: AS NECESSARY
     Route: 030
     Dates: start: 20221206, end: 20221206

REACTIONS (4)
  - Back pain [Recovering/Resolving]
  - Skin depigmentation [Recovering/Resolving]
  - Off label use [Unknown]
  - Injection site indentation [Recovering/Resolving]

NARRATIVE: CASE EVENT DATE: 20221201
